FAERS Safety Report 5333897-1 (Version None)
Quarter: 2007Q2

REPORT INFORMATION
  Report Type: 
  Country: None (occurrence: None)
  Receive Date: 20070521
  Receipt Date: 20070507
  Transmission Date: 20071010
  Serious: Yes (Hospitalization)
  Sender: FDA-Public Use
  Company Number: GXKR2007US04099

PATIENT
  Age: 11 Year
  Sex: Male

DRUGS (5)
  1. CHLORPROMAZINE [Suspect]
     Indication: PSYCHOTIC DISORDER
  2. RISPERIDONE [Suspect]
     Indication: PSYCHOTIC DISORDER
  3. LITHIUM CARBONATE [Suspect]
     Indication: PSYCHOTIC DISORDER
  4. BENZATROPINE(BENZTROPINE) [Concomitant]
     Indication: PSYCHOTIC DISORDER
  5. VALPROIC ACID [Concomitant]

REACTIONS (19)
  - AGGRESSION [None]
  - ANTICHOLINERGIC SYNDROME [None]
  - COGWHEEL RIGIDITY [None]
  - CONFUSIONAL STATE [None]
  - DRY MOUTH [None]
  - DRY SKIN [None]
  - DYSKINESIA [None]
  - FATIGUE [None]
  - GLOSSODYNIA [None]
  - HOMICIDAL IDEATION [None]
  - HYPOKINESIA [None]
  - MALAISE [None]
  - MOVEMENT DISORDER [None]
  - ORAL CANDIDIASIS [None]
  - SOMNOLENCE [None]
  - SUICIDAL IDEATION [None]
  - TACHYCARDIA [None]
  - TONGUE COATED [None]
  - TREMOR [None]
